FAERS Safety Report 5150451-5 (Version None)
Quarter: 2006Q4

REPORT INFORMATION
  Report Type: 
  Country: None (occurrence: None)
  Receive Date: 20061114
  Receipt Date: 20061108
  Transmission Date: 20070319
  Serious: Yes (Death)
  Sender: FDA-Public Use
  Company Number: 2006PK02305

PATIENT
  Age: 27822 Day
  Sex: Female
  Weight: 63 kg

DRUGS (11)
  1. SEROQUEL [Suspect]
     Route: 048
     Dates: start: 20060629, end: 20060630
  2. SEROQUEL [Suspect]
     Route: 048
     Dates: start: 20060701, end: 20060702
  3. SEROQUEL [Suspect]
     Route: 048
     Dates: start: 20060703, end: 20060703
  4. SEROQUEL [Suspect]
     Route: 048
     Dates: start: 20060704, end: 20060704
  5. SEROQUEL [Suspect]
     Route: 048
     Dates: start: 20060705, end: 20060706
  6. SEROQUEL [Suspect]
     Route: 048
     Dates: start: 20060707, end: 20060708
  7. TAVOR [Suspect]
     Route: 048
     Dates: end: 20060628
  8. TAVOR [Suspect]
     Route: 048
     Dates: start: 20060629, end: 20060707
  9. STANGYL [Suspect]
     Route: 048
     Dates: end: 20060708
  10. DUROGESIC PLASTER [Concomitant]
     Route: 062
     Dates: end: 20060708
  11. TRILEPTAL [Concomitant]
     Route: 048
     Dates: start: 20060628, end: 20060706

REACTIONS (6)
  - APNOEA [None]
  - CARDIAC ARREST [None]
  - CIRCULATORY COLLAPSE [None]
  - FALL [None]
  - MOUTH INJURY [None]
  - PNEUMONIA [None]
